FAERS Safety Report 5484927-8 (Version None)
Quarter: 2007Q4

REPORT INFORMATION
  Report Type: 
  Country: None (occurrence: None)
  Receive Date: 20071011
  Receipt Date: 20070925
  Transmission Date: 20080405
  Serious: Yes (Other)
  Sender: FDA-Public Use
  Company Number: 2007VX002402

PATIENT
  Age: 40 Year
  Sex: Male

DRUGS (13)
  1. INTERFERON ALFACON-1 [Suspect]
     Indication: HEPATITIS C
     Dosage: 15 UG;TIW;SC
     Route: 058
     Dates: start: 20070829
  2. RIBAVIRIN [Suspect]
     Indication: HEPATITIS C
     Dosage: 600 MG;BID;PO
     Route: 048
     Dates: start: 20070829
  3. ALPRAZOLAM [Concomitant]
  4. PREVACID [Concomitant]
  5. CELEXA [Concomitant]
  6. IRON [Concomitant]
  7. EPIVIR [Concomitant]
  8. ATAZANAVIR SULFATE [Concomitant]
  9. VIREAD [Concomitant]
  10. NORVIR [Concomitant]
  11. POTASSIUM GLUCONATE TAB [Concomitant]
  12. ANTIBIOTICS [Concomitant]
  13. NADOLOL [Concomitant]

REACTIONS (8)
  - DRUG INTERACTION [None]
  - FATIGUE [None]
  - HEPATIC ENZYME INCREASED [None]
  - LETHARGY [None]
  - LIVER DISORDER [None]
  - PLATELET COUNT DECREASED [None]
  - PYREXIA [None]
  - WHITE BLOOD CELL COUNT DECREASED [None]
